FAERS Safety Report 7485176-4 (Version None)
Quarter: 2011Q2

REPORT INFORMATION
  Report Type: 
  Country: None (occurrence: None)
  Receive Date: 20110517
  Receipt Date: 20110511
  Transmission Date: 20111010
  Serious: Yes (Other)
  Sender: FDA-Public Use
  Company Number: GR-ROCHE-776864

PATIENT
  Sex: Male

DRUGS (2)
  1. PAROXETINE HCL [Interacting]
     Indication: DEPRESSION
     Dosage: FREQUENCY: ONCE DAILY
     Route: 048
     Dates: start: 20110401
  2. CLONAZEPAM [Suspect]
     Dosage: 1/2 TABLET BID
     Route: 048
     Dates: start: 20110201

REACTIONS (2)
  - DRUG INTERACTION [None]
  - FATIGUE [None]
